FAERS Safety Report 10402627 (Version 2)
Quarter: 2014Q3

REPORT INFORMATION
  Report Type: Spontaneous
  Country: US (occurrence: US)
  Receive Date: 20140822
  Receipt Date: 20140822
  Transmission Date: 20150326
  Serious: Yes (Hospitalization, Other)
  Sender: FDA-Public Use
  Company Number: US-009507513-2009SP020292

PATIENT
  Sex: Female
  Weight: 72.58 kg

DRUGS (1)
  1. NUVARING [Suspect]
     Active Substance: ETHINYL ESTRADIOL\ETONOGESTREL
     Indication: CONTRACEPTION
     Route: 067
     Dates: start: 20060322, end: 20070224

REACTIONS (11)
  - Cardiogenic shock [Recovered/Resolved]
  - Right ventricular failure [Recovered/Resolved]
  - Platelet count decreased [Unknown]
  - Respiratory failure [Recovered/Resolved]
  - Anaemia [Recovering/Resolving]
  - Cardiomegaly [Unknown]
  - Nephrolithiasis [Unknown]
  - Pulmonary embolism [Recovered/Resolved]
  - Supraventricular tachycardia [Recovered/Resolved]
  - Retroperitoneal haematoma [Recovered/Resolved]
  - Deep vein thrombosis [Recovered/Resolved]

NARRATIVE: CASE EVENT DATE: 20070215
